FAERS Safety Report 4305698-4 (Version None)
Quarter: 2004Q1

REPORT INFORMATION
  Report Type: 
  Country: None (occurrence: None)
  Receive Date: 20040223
  Receipt Date: 20031112
  Transmission Date: 20041129
  Serious: No
  Sender: FDA-Public Use
  Company Number: SU-2003-001921

PATIENT
  Age: 72 Year
  Sex: Female
  Weight: 77.1115 kg

DRUGS (7)
  1. BENICAR [Suspect]
     Indication: HYPERTENSION
     Dosage: 40 MG QD PO
     Route: 048
     Dates: start: 20030818, end: 20030101
  2. KEFLEX [Suspect]
     Dates: start: 20030901, end: 20030901
  3. BENICAR [Suspect]
     Indication: HYPERTENSION
     Dosage: 40 MG QD PO
     Route: 048
     Dates: start: 20030901, end: 20030901
  4. BENICAR [Suspect]
     Indication: HYPERTENSION
     Dosage: 40 MG QD PO
     Route: 048
     Dates: start: 20031101
  5. ALLEGRA [Concomitant]
  6. CELEBREX [Concomitant]
  7. BENTYL [Concomitant]

REACTIONS (1)
  - RASH PRURITIC [None]
